FAERS Safety Report 6104427-1 (Version None)
Quarter: 2009Q1

REPORT INFORMATION
  Report Type: 
  Country: None (occurrence: None)
  Receive Date: 20090305
  Receipt Date: 20090220
  Transmission Date: 20090719
  Serious: Yes (Other)
  Sender: FDA-Public Use
  Company Number: PHHY2009FI06415

PATIENT
  Sex: Female

DRUGS (3)
  1. GLEEVEC [Suspect]
     Indication: CHRONIC MYELOID LEUKAEMIA
     Dosage: UNK
     Dates: start: 20030101
  2. GLEEVEC [Suspect]
     Dosage: 200MG DAILY
     Dates: start: 20060101
  3. THYROXINE [Concomitant]

REACTIONS (9)
  - ARTHRALGIA [None]
  - CARTILAGE INJURY [None]
  - GAIT DISTURBANCE [None]
  - JOINT DISLOCATION [None]
  - JOINT INJURY [None]
  - OSTEOPOROTIC FRACTURE [None]
  - PALPITATIONS [None]
  - SCOLIOSIS [None]
  - SPINAL COMPRESSION FRACTURE [None]
